FAERS Safety Report 19053046 (Version 1)
Quarter: 2021Q1

REPORT INFORMATION
  Report Type: Spontaneous
  Country: IN (occurrence: IN)
  Receive Date: 20210324
  Receipt Date: 20210324
  Transmission Date: 20210420
  Serious: Yes (Hospitalization)
  Sender: FDA-Public Use
  Company Number: IN-MYLANLABS-2021M1017666

PATIENT
  Age: 50 Year
  Sex: Female

DRUGS (1)
  1. CISPLATIN. [Suspect]
     Active Substance: CISPLATIN
     Indication: SQUAMOUS CELL CARCINOMA OF THE CERVIX
     Dosage: 60 MILLIGRAM, QW THREE CYCLES
     Route: 065

REACTIONS (3)
  - Soft tissue sarcoma [Recovering/Resolving]
  - Abscess limb [Recovering/Resolving]
  - Tumour haemorrhage [Recovering/Resolving]
